FAERS Safety Report 19407109 (Version 1)
Quarter: 2021Q2

REPORT INFORMATION
  Report Type: Report from Study
  Country: US (occurrence: US)
  Receive Date: 20210611
  Receipt Date: 20210611
  Transmission Date: 20210717
  Serious: Yes (Death, Other)
  Sender: FDA-Public Use
  Company Number: US-PFIZER INC-2021676038

PATIENT
  Sex: Female

DRUGS (6)
  1. ETOPOSIDE. [Suspect]
     Active Substance: ETOPOSIDE
     Indication: MINIMAL RESIDUAL DISEASE
     Dosage: 250 MG/M2 (LATER REDUCED OVER 3 HOURS ON DAYS ?5 TO ?3)
     Route: 042
  2. THIOTEPA. [Suspect]
     Active Substance: THIOTEPA
     Indication: MINIMAL RESIDUAL DISEASE
  3. CARBOPLATIN. [Suspect]
     Active Substance: CARBOPLATIN
     Indication: MINIMAL RESIDUAL DISEASE
  4. THIOTEPA. [Suspect]
     Active Substance: THIOTEPA
     Indication: PINEALOBLASTOMA
     Dosage: 300 MG/M2 (OVER 3 HR) WAS ADMINISTERED ON DAYS ?5 TO ?3)
     Route: 042
  5. ETOPOSIDE. [Suspect]
     Active Substance: ETOPOSIDE
     Indication: PINEALOBLASTOMA
     Dosage: 500 MG/M2
     Route: 042
  6. CARBOPLATIN. [Suspect]
     Active Substance: CARBOPLATIN
     Indication: PINEALOBLASTOMA
     Dosage: 500 MG/M2 (4?HR INFUSION ON DAYS ?8 TO ?6)

REACTIONS (1)
  - Septic shock [Fatal]
